FAERS Safety Report 4826778-0 (Version None)
Quarter: 2005Q4

REPORT INFORMATION
  Report Type: 
  Country: None (occurrence: None)
  Receive Date: 20051111
  Receipt Date: 20051111
  Transmission Date: 20060501
  Serious: Yes (Other)
  Sender: FDA-Public Use
  Company Number: None

PATIENT
  Sex: Female
  Weight: 70.5 kg

DRUGS (3)
  1. CYCLOPHOSPHAMIDE [Suspect]
     Indication: BREAST CANCER
     Dosage: SEE IMAGE
     Dates: start: 20051004, end: 20051004
  2. DOCETAXEL [Suspect]
     Dosage: SEE IMAGE
     Dates: start: 20051004, end: 20051004
  3. DOXORUBICIN HYDROCHLORIDE [Suspect]
     Dosage: SEE IMAGE
     Dates: start: 20051004, end: 20051004

REACTIONS (1)
  - SELF INJURIOUS BEHAVIOUR [None]
